FAERS Safety Report 6602111-9 (Version None)
Quarter: 2010Q1

REPORT INFORMATION
  Report Type: 
  Country: None (occurrence: None)
  Receive Date: 20100225
  Receipt Date: 20100215
  Transmission Date: 20100710
  Serious: Yes (Hospitalization)
  Sender: FDA-Public Use
  Company Number: PHHY2010SE10427

PATIENT
  Age: 62 Year
  Sex: Male

DRUGS (3)
  1. STALEVO 100 [Suspect]
     Indication: PARKINSON'S DISEASE
     Dosage: 7X150 MG + 3X100MG
     Route: 048
  2. STALEVO 100 [Suspect]
     Dosage: 5X150 MG + 4X100MG
     Route: 048
  3. REQUIP [Concomitant]
     Dosage: 10 MG, UNK

REACTIONS (9)
  - AGITATION [None]
  - DYSPNOEA [None]
  - EUPHORIC MOOD [None]
  - FEELING ABNORMAL [None]
  - HOT FLUSH [None]
  - INSOMNIA [None]
  - MUSCLE SPASMS [None]
  - OVERDOSE [None]
  - TREMOR [None]
